FAERS Safety Report 5736292-6 (Version None)
Quarter: 2008Q2

REPORT INFORMATION
  Report Type: 
  Country: None (occurrence: None)
  Receive Date: 20080513
  Receipt Date: 20080507
  Transmission Date: 20081010
  Serious: Yes (Life-Threatening, Hospitalization, Other)
  Sender: FDA-Public Use
  Company Number: US-JNJFOC-20080501810

PATIENT
  Age: 57 Year
  Sex: Male
  Weight: 127.01 kg

DRUGS (4)
  1. LEVAQUIN [Suspect]
     Indication: URINARY TRACT INFECTION
     Route: 048
  2. SEPTRA [Concomitant]
     Indication: PROPHYLAXIS
     Route: 048
  3. PEROCET [Concomitant]
     Indication: PAIN
     Route: 048
  4. UNSPECIFIED MEDICATION [Concomitant]

REACTIONS (14)
  - ARRHYTHMIA [None]
  - BLOOD GLUCOSE DECREASED [None]
  - CARDIAC ENZYMES INCREASED [None]
  - CONFUSIONAL STATE [None]
  - DELUSION [None]
  - DYSPNOEA [None]
  - ENCEPHALOPATHY [None]
  - GAIT DISTURBANCE [None]
  - LUNG INFILTRATION [None]
  - PRURITUS [None]
  - RASH MACULAR [None]
  - TACHYCARDIA [None]
  - TREMOR [None]
  - URINE OUTPUT DECREASED [None]
